FAERS Safety Report 25801421 (Version 1)
Quarter: 2025Q3

REPORT INFORMATION
  Report Type: Spontaneous
  Country: CA (occurrence: CA)
  Receive Date: 20250915
  Receipt Date: 20250915
  Transmission Date: 20251020
  Serious: Yes (Other)
  Sender: ASTELLAS
  Company Number: CA-ASTELLAS-2025-AER-037983

PATIENT
  Age: 75 Year
  Sex: Female

DRUGS (3)
  1. VEOZAH [Interacting]
     Active Substance: FEZOLINETANT
     Indication: Hyperhidrosis
     Route: 048
     Dates: start: 2025
  2. VEOZAH [Interacting]
     Active Substance: FEZOLINETANT
     Indication: Menopausal symptoms
  3. PROPRANOLOL [Interacting]
     Active Substance: PROPRANOLOL HYDROCHLORIDE
     Indication: Tremor
     Route: 048
     Dates: start: 202411, end: 20250615

REACTIONS (3)
  - Parkinson^s disease [Not Recovered/Not Resolved]
  - Drug interaction [Unknown]
  - Off label use [Unknown]

NARRATIVE: CASE EVENT DATE: 20250101
